FAERS Safety Report 6585260-3 (Version None)
Quarter: 2010Q1

REPORT INFORMATION
  Report Type: 
  Country: None (occurrence: None)
  Receive Date: 20100217
  Receipt Date: 20100203
  Transmission Date: 20100710
  Serious: Yes (Other)
  Sender: FDA-Public Use
  Company Number: US-BAYER-201014093NA

PATIENT
  Age: 25 Year
  Sex: Female

DRUGS (1)
  1. MIRENA [Suspect]
     Indication: CONTRACEPTION
     Dosage: FREQUENCY CONTINUOUS
     Route: 015
     Dates: start: 20100129, end: 20100130

REACTIONS (5)
  - ABDOMINAL PAIN [None]
  - PAIN [None]
  - PELVIC INFECTION [None]
  - PYREXIA [None]
  - VAGINAL DISCHARGE [None]
